FAERS Safety Report 7717572-1 (Version None)
Quarter: 2011Q3

REPORT INFORMATION
  Report Type: 
  Country: None (occurrence: None)
  Receive Date: 20110830
  Receipt Date: 20110819
  Transmission Date: 20111222
  Serious: Yes (Hospitalization)
  Sender: FDA-Public Use
  Company Number: US-US-EMD SERONO, INC.-7078095

PATIENT
  Sex: Female

DRUGS (3)
  1. REBIF [Suspect]
     Route: 058
     Dates: start: 20100830, end: 20110601
  2. REBIF [Suspect]
     Route: 058
     Dates: start: 20110701
  3. REBIF [Suspect]
     Indication: MULTIPLE SCLEROSIS
     Route: 058
     Dates: start: 20070101, end: 20080101

REACTIONS (2)
  - GASTROINTESTINAL BACTERIAL INFECTION [None]
  - INFLUENZA LIKE ILLNESS [None]
